FAERS Safety Report 8144345-0 (Version None)
Quarter: 2012Q1

REPORT INFORMATION
  Report Type: 
  Country: None (occurrence: None)
  Receive Date: 20120103
  Receipt Date: 20110825
  Transmission Date: 20120608
  Serious: No
  Sender: FDA-Public Use
  Company Number: AE-2011-000579

PATIENT
  Age: 49 Year
  Sex: Male
  Weight: 68.0396 kg

DRUGS (4)
  1. PEGINTERFERON (PEGINTERFERON ALFA-2A) [Concomitant]
  2. AMOXICILLIN [Concomitant]
  3. INCIVEK [Suspect]
     Dosage: 2250 MG (750 MG, 1 IN 8 HR)
     Dates: start: 20110715
  4. RIBAVIRIN [Concomitant]

REACTIONS (8)
  - DYSPNOEA [None]
  - VOMITING [None]
  - COUGH [None]
  - ORAL DISCOMFORT [None]
  - SLEEP DISORDER [None]
  - HEADACHE [None]
  - NAUSEA [None]
  - PYREXIA [None]
